FAERS Safety Report 8121755-9 (Version None)
Quarter: 2012Q1

REPORT INFORMATION
  Report Type: 
  Country: None (occurrence: None)
  Receive Date: 20120208
  Receipt Date: 20120131
  Transmission Date: 20120608
  Serious: Yes (Other)
  Sender: FDA-Public Use
  Company Number: NO-TEVA-321397ISR

PATIENT
  Age: 27 Year
  Sex: Female

DRUGS (3)
  1. FENTANYL CITRATE [Suspect]
  2. SUXAMETHONIUM [Suspect]
  3. THIOPENTAL SODIUM [Suspect]

REACTIONS (2)
  - ANAPHYLACTIC REACTION [None]
  - CIRCULATORY COLLAPSE [None]
